FAERS Safety Report 12972112 (Version 1)
Quarter: 2016Q4

REPORT INFORMATION
  Report Type: Spontaneous
  Country: FR (occurrence: FR)
  Receive Date: 20161124
  Receipt Date: 20161124
  Transmission Date: 20170207
  Serious: Yes (Hospitalization)
  Sender: FDA-Public Use
  Company Number: FR-ACCORD-045762

PATIENT
  Age: 74 Year
  Sex: Male

DRUGS (6)
  1. TETRABENAZINE. [Suspect]
     Active Substance: TETRABENAZINE
     Indication: TARDIVE DYSKINESIA
     Dosage: 25 MG/D WAS FINALLY REINTRODUCED MAR-2015
     Dates: start: 201303, end: 201411
  2. ESCITALOPRAM [Suspect]
     Active Substance: ESCITALOPRAM OXALATE
     Indication: DEPRESSION
     Dates: start: 2011
  3. BACLOFEN. [Suspect]
     Active Substance: BACLOFEN
     Indication: TARDIVE DYSKINESIA
     Dates: end: 201411
  4. MIANSERIN [Concomitant]
     Active Substance: MIANSERIN
     Indication: PSYCHIATRIC SYMPTOM
  5. HYDROXYCARBAMIDE [Concomitant]
     Active Substance: HYDROXYUREA
     Indication: ESSENTIAL THROMBOCYTHAEMIA
  6. CLONAZEPAM. [Suspect]
     Active Substance: CLONAZEPAM
     Indication: TARDIVE DYSKINESIA
     Dosage: REINTRODUCED 0.6 MG/D IN JUN-2015
     Dates: end: 201411

REACTIONS (3)
  - Psychiatric symptom [Unknown]
  - Condition aggravated [Unknown]
  - Drug ineffective [Unknown]
